FAERS Safety Report 25739691 (Version 1)
Quarter: 2025Q3

REPORT INFORMATION
  Report Type: Spontaneous
  Country: EU (occurrence: EU)
  Receive Date: 20250829
  Receipt Date: 20250829
  Transmission Date: 20251021
  Serious: Yes (Hospitalization)
  Sender: TEVA
  Company Number: None

PATIENT
  Age: 51 Year
  Sex: Female

DRUGS (5)
  1. LAMOTRIGINE [Suspect]
     Active Substance: LAMOTRIGINE
     Indication: Major depression
     Dosage: 100MG 0-0-1
     Route: 048
     Dates: start: 20250609, end: 20250625
  2. LAMOTRIGINE [Suspect]
     Active Substance: LAMOTRIGINE
     Indication: Major depression
     Dosage: 25 MG 0-0-1 2 WEEKS FOR ASCENDING REGIMEN, LAMOTRIGINA (2579A)
     Route: 048
     Dates: start: 20250320, end: 20250403
  3. LAMOTRIGINE [Suspect]
     Active Substance: LAMOTRIGINE
     Indication: Major depression
     Dosage: 25MG 1-0-1
     Route: 048
     Dates: start: 20250404, end: 20250504
  4. LAMOTRIGINE [Suspect]
     Active Substance: LAMOTRIGINE
     Indication: Major depression
     Dosage: 50MG 1-0-1
     Route: 048
     Dates: start: 20250505, end: 20250608
  5. LAMOTRIGINE [Suspect]
     Active Substance: LAMOTRIGINE
     Indication: Major depression
     Dosage: 100MG 1-0-1
     Route: 048
     Dates: start: 20250626

REACTIONS (2)
  - Pleuropericarditis [Recovering/Resolving]
  - Chest pain [Recovered/Resolved]

NARRATIVE: CASE EVENT DATE: 20250618
